FAERS Safety Report 6179215-0 (Version None)
Quarter: 2009Q2

REPORT INFORMATION
  Report Type: 
  Country: None (occurrence: None)
  Receive Date: 20090430
  Receipt Date: 20090421
  Transmission Date: 20091009
  Serious: Yes (Hospitalization)
  Sender: FDA-Public Use
  Company Number: FLX20090003

PATIENT
  Age: 53 Year
  Sex: Female

DRUGS (7)
  1. FLUOXETINE [Suspect]
     Indication: FATIGUE
     Dosage: 40 MG, DAILY, ORAL
     Route: 048
  2. BACLOFEN [Concomitant]
  3. MODAFINIL [Concomitant]
  4. AMANTADINE HCL [Concomitant]
  5. OXYBUTYNIN CHLORIDE [Concomitant]
  6. INTERFERON BETA [Concomitant]
  7. LEVOTHYROXINE SODIUM [Concomitant]

REACTIONS (11)
  - ABNORMAL DREAMS [None]
  - AFFECT LABILITY [None]
  - CONFUSIONAL STATE [None]
  - DELIRIUM [None]
  - DELUSION OF GRANDEUR [None]
  - DEPERSONALISATION [None]
  - DIARRHOEA [None]
  - DISORIENTATION [None]
  - DRUG WITHDRAWAL SYNDROME [None]
  - HALLUCINATIONS, MIXED [None]
  - INFLUENZA LIKE ILLNESS [None]
